FAERS Safety Report 18475067 (Version 1)
Quarter: 2020Q4

REPORT INFORMATION
  Report Type: Spontaneous
  Country: TR (occurrence: TR)
  Receive Date: 20201106
  Receipt Date: 20201106
  Transmission Date: 20210114
  Serious: Yes (Hospitalization)
  Sender: FDA-Public Use
  Company Number: NVSC2020TR297261

PATIENT
  Age: 45 Year
  Sex: Male

DRUGS (2)
  1. METHOTREXATE. [Suspect]
     Active Substance: METHOTREXATE
     Indication: PEMPHIGUS
     Dosage: 80 MG, QD
     Route: 065
  2. PREDNISOLONE. [Suspect]
     Active Substance: PREDNISOLONE
     Indication: PEMPHIGUS
     Dosage: 15 MG, QW
     Route: 065

REACTIONS (5)
  - Typhoid fever [Recovered/Resolved]
  - Product use in unapproved indication [Unknown]
  - Osteomyelitis salmonella [Recovered/Resolved]
  - Pneumonia salmonella [Recovered/Resolved]
  - Large intestinal ulcer [Recovered/Resolved]
